FAERS Safety Report 4887532-7 (Version None)
Quarter: 2006Q1

REPORT INFORMATION
  Report Type: 
  Country: None (occurrence: None)
  Receive Date: 20060118
  Receipt Date: 20060105
  Transmission Date: 20060701
  Serious: Yes (Hospitalization)
  Sender: FDA-Public Use
  Company Number: 13206

PATIENT
  Age: 59 Year
  Sex: Female

DRUGS (2)
  1. FLUCONAZOLE [Suspect]
     Indication: CANDIDIASIS
     Dosage: 400 MG DAILY IV
     Route: 042
  2. FLUCONAZOLE [Suspect]
     Indication: CANDIDIASIS
     Dosage: 150 MG DAILY IP
     Route: 033

REACTIONS (4)
  - ELECTROCARDIOGRAM T WAVE INVERSION [None]
  - SYNCOPE [None]
  - TORSADE DE POINTES [None]
  - VENTRICULAR EXTRASYSTOLES [None]
